FAERS Safety Report 15950829 (Version 2)
Quarter: 2019Q1

REPORT INFORMATION
  Report Type: Spontaneous
  Country: CH (occurrence: CH)
  Receive Date: 20190212
  Receipt Date: 20190225
  Transmission Date: 20190417
  Serious: Yes (Hospitalization, Other)
  Sender: FDA-Public Use
  Company Number: CH-PFIZER INC-2019053373

PATIENT
  Age: 77 Year
  Sex: Male

DRUGS (11)
  1. ESOMEP [ESOMEPRAZOLE SODIUM] [Concomitant]
     Dosage: UNK
  2. PREGABALIN PFIZER [Suspect]
     Active Substance: PREGABALIN
     Dosage: 150 MG, 2X/DAY (EVERY 12 HOURS)
     Route: 048
     Dates: start: 20190107, end: 20190107
  3. PREGABALIN PFIZER [Suspect]
     Active Substance: PREGABALIN
     Dosage: 300 MG, 2X/DAY (EVERY 12 HOURS)
     Route: 048
     Dates: end: 20190106
  4. TOREM [TORASEMIDE SODIUM] [Concomitant]
     Dosage: UNK
  5. COVERAM PLUS [Concomitant]
     Active Substance: AMLODIPINE BESYLATE\INDAPAMIDE\PERINDOPRIL ARGININE
     Dosage: UNK
  6. CONDROSULF [Concomitant]
     Active Substance: SODIUM CHONDROITIN SULFATE
     Dosage: UNK
  7. TRESIBA [Concomitant]
     Active Substance: INSULIN DEGLUDEC
     Dosage: UNK
  8. PREGABALIN PFIZER [Suspect]
     Active Substance: PREGABALIN
     Dosage: 75 MG, 2X/DAY (EVERY 12 HOURS)
     Route: 048
     Dates: start: 20190108, end: 20190110
  9. NOVORAPID [Concomitant]
     Active Substance: INSULIN ASPART
     Dosage: UNK
  10. ASPIRIN CARDIO [Concomitant]
     Active Substance: ASPIRIN
     Dosage: UNK
  11. SIMVASTATIN. [Concomitant]
     Active Substance: SIMVASTATIN
     Dosage: UNK

REACTIONS (7)
  - Weight increased [Recovering/Resolving]
  - Overdose [Unknown]
  - Dyspnoea [Recovering/Resolving]
  - Disease progression [Not Recovered/Not Resolved]
  - Dysphonia [Unknown]
  - Generalised oedema [Recovering/Resolving]
  - Hyperventilation [Unknown]

NARRATIVE: CASE EVENT DATE: 20190104
